FAERS Safety Report 9423838 (Version 3)
Quarter: 2014Q2

REPORT INFORMATION
  Report Type: Report from Study
  Country: US (occurrence: US)
  Receive Date: 20130729
  Receipt Date: 20140422
  Transmission Date: 20141212
  Serious: Yes (Other)
  Sender: FDA-Public Use
  Company Number: US-PFIZER INC-2013213509

PATIENT
  Age: 57 Year
  Sex: Female
  Weight: 124 kg

DRUGS (6)
  1. TOFACITINIB CITRATE [Suspect]
     Indication: RHEUMATOID ARTHRITIS
     Dosage: 10 MG, BID
     Route: 048
     Dates: start: 20101102, end: 20131023
  2. TYLENOL [Concomitant]
     Indication: ARTHRALGIA
     Dosage: 325 MG, FREQUENCY: QID PRN
     Route: 048
     Dates: start: 20080623
  3. ASPIRIN [Concomitant]
     Indication: CARDIOVASCULAR EVENT PROPHYLAXIS
     Dosage: 81 MG, QD
     Route: 048
     Dates: start: 20101102
  4. NAPROSYN [Concomitant]
     Indication: ARTHRALGIA
     Dosage: 500 MG, FREQUENCY: BID PRN
     Route: 048
     Dates: start: 20121001
  5. LISINOPRIL [Concomitant]
     Indication: HYPERTENSION
     Dosage: 20 MG, QD
     Route: 048
     Dates: start: 20120117
  6. VITAMIN E [Concomitant]
     Indication: SUPPLEMENTATION THERAPY
     Dosage: 400 IU, QD
     Route: 048
     Dates: start: 20130117

REACTIONS (1)
  - Endometrial cancer stage I [Recovered/Resolved]
